FAERS Safety Report 17989336 (Version 2)
Quarter: 2020Q3

REPORT INFORMATION
  Report Type: Spontaneous
  Country: ES (occurrence: ES)
  Receive Date: 20200707
  Receipt Date: 20200713
  Transmission Date: 20201103
  Serious: Yes (Other)
  Sender: FDA-Public Use
  Company Number: ES-MYLANLABS-2020M1060261

PATIENT
  Age: 12 Year
  Sex: Female

DRUGS (12)
  1. ERLOTINIB [Suspect]
     Active Substance: ERLOTINIB
     Indication: RESPIRATORY PAPILLOMA
     Dosage: 150 MILLIGRAM, QD
  2. CELECOXIB. [Suspect]
     Active Substance: CELECOXIB
     Indication: RESPIRATORY PAPILLOMA
     Dosage: 200 MILLIGRAM, QD
     Route: 042
  3. GARDASIL [Suspect]
     Active Substance: HUMAN PAPILLOMAVIRUS QUADRIVALENT (TYPES 6, 11, 16, AND 18) VACCINE, RECOMBINANT
     Indication: LARYNGEAL PAPILLOMA
     Dosage: UNK
  4. INTERFERON ALFA?2B [Suspect]
     Active Substance: INTERFERON ALFA-2B
     Indication: RESPIRATORY PAPILLOMA
     Dosage: UNK
  5. ERLOTINIB [Suspect]
     Active Substance: ERLOTINIB
     Dosage: UNK
  6. INTERFERON ALFA?2B [Suspect]
     Active Substance: INTERFERON ALFA-2B
     Dosage: 4.5 MILLION OF UNITS, ALTERNATE DAYS
     Route: 058
     Dates: start: 200112, end: 200201
  7. CIDOFOVIR. [Suspect]
     Active Substance: CIDOFOVIR
     Indication: LARYNGEAL PAPILLOMA
     Dosage: UNK
  8. GARDASIL [Suspect]
     Active Substance: HUMAN PAPILLOMAVIRUS QUADRIVALENT (TYPES 6, 11, 16, AND 18) VACCINE, RECOMBINANT
     Indication: RESPIRATORY PAPILLOMA
     Dosage: UNK
     Dates: start: 200707, end: 200707
  9. INTERFERON ALFA?2B [Suspect]
     Active Substance: INTERFERON ALFA-2B
     Indication: LARYNGEAL PAPILLOMA
     Dosage: UNK
  10. CELECOXIB. [Suspect]
     Active Substance: CELECOXIB
     Indication: LARYNGEAL PAPILLOMA
     Dosage: 200 MILLIGRAM, QD
     Route: 042
  11. ERLOTINIB [Suspect]
     Active Substance: ERLOTINIB
     Indication: LARYNGEAL PAPILLOMA
     Dosage: UNK
  12. CIDOFOVIR. [Suspect]
     Active Substance: CIDOFOVIR
     Indication: RESPIRATORY PAPILLOMA
     Dosage: UNK

REACTIONS (5)
  - Respiratory papilloma [Recovering/Resolving]
  - Laryngeal papilloma [Recovering/Resolving]
  - Papilloma viral infection [Recovering/Resolving]
  - Therapeutic response decreased [Unknown]
  - Off label use [Unknown]

NARRATIVE: CASE EVENT DATE: 200707
